FAERS Safety Report 21568269 (Version 1)
Quarter: 2022Q4

REPORT INFORMATION
  Report Type: Spontaneous
  Country: US (occurrence: None)
  Receive Date: 20221106
  Receipt Date: 20221106
  Transmission Date: 20230113
  Serious: No
  Sender: FDA-Public Use
  Company Number: None

PATIENT

DRUGS (1)
  1. EVEROLIMUS [Suspect]
     Active Substance: EVEROLIMUS

REACTIONS (4)
  - Accidental exposure to product packaging [None]
  - Packaging design issue [None]
  - Wrong technique in product usage process [None]
  - Product blister packaging issue [None]
